FAERS Safety Report 6844337-5 (Version None)
Quarter: 2010Q3

REPORT INFORMATION
  Report Type: 
  Country: None (occurrence: None)
  Receive Date: 20100715
  Receipt Date: 20100706
  Transmission Date: 20110219
  Serious: Yes (Other)
  Sender: FDA-Public Use
  Company Number: US-PFIZER INC-2010039727

PATIENT
  Sex: Female

DRUGS (1)
  1. SUTENT [Suspect]
     Indication: RENAL CELL CARCINOMA
     Dosage: 25 MG, 1X/DAY, FOR 21 DAYS Q 28 DAYS
     Route: 048
     Dates: start: 20090601

REACTIONS (6)
  - BLOOD PRESSURE INCREASED [None]
  - EYELID PTOSIS [None]
  - PALMAR-PLANTAR ERYTHRODYSAESTHESIA SYNDROME [None]
  - PARAESTHESIA [None]
  - SKIN EXFOLIATION [None]
  - YELLOW SKIN [None]
